FAERS Safety Report 20022931 (Version 2)
Quarter: 2025Q2

REPORT INFORMATION
  Report Type: Spontaneous
  Country: US (occurrence: US)
  Receive Date: 20211102
  Receipt Date: 20250528
  Transmission Date: 20250716
  Serious: No
  Sender: CIPLA
  Company Number: US-CIPLA LTD.-2021US05973

PATIENT

DRUGS (1)
  1. ALBUTEROL [Suspect]
     Active Substance: ALBUTEROL
     Indication: Product used for unknown indication
     Route: 065

REACTIONS (5)
  - Cough [Unknown]
  - Device ineffective [Unknown]
  - Device delivery system issue [Unknown]
  - Product taste abnormal [Unknown]
  - Vomiting [Unknown]
